FAERS Safety Report 9500154 (Version 1)
Quarter: 2013Q3

REPORT INFORMATION
  Report Type: Report from Study
  Country: US (occurrence: US)
  Receive Date: 20130905
  Receipt Date: 20130905
  Transmission Date: 20140515
  Serious: Yes (Death)
  Sender: FDA-Public Use
  Company Number: PHEH2013US018626

PATIENT
  Sex: Male
  Weight: 111.11 kg

DRUGS (9)
  1. TASIGNA [Suspect]
     Indication: DESMOID TUMOUR
     Dosage: 300 MG, BID
     Route: 048
     Dates: start: 20130701, end: 201307
  2. TASIGNA [Suspect]
     Indication: OFF LABEL USE
  3. FLUTICASONE [Concomitant]
     Dosage: UNK, BID
  4. ZOFRAN [Concomitant]
     Dosage: 4 MG, Q8H
     Route: 048
  5. OXYCONTIN [Concomitant]
     Dosage: 20 MG, Q12H
     Route: 048
  6. MIRALAX [Concomitant]
     Dosage: 17 G, QD
     Route: 048
  7. CM PROMETHAZINE [Concomitant]
     Dosage: 12.5 MG, Q6H
  8. SENOKOT                                 /UNK/ [Concomitant]
     Dosage: 1 DF, QD
     Route: 048
  9. AMBIEN [Suspect]
     Dosage: UNK, PRN

REACTIONS (1)
  - Sepsis [Fatal]
